FAERS Safety Report 8652386 (Version 2)
Quarter: 2012Q4

REPORT INFORMATION
  Report Type: Report from Study
  Country: GB (occurrence: GB)
  Receive Date: 20120706
  Receipt Date: 20120921
  Transmission Date: 20130627
  Serious: Yes (Hospitalization)
  Sender: FDA-Public Use
  Company Number: GB-ROCHE-1083647

PATIENT
  Age: 81 Year
  Sex: Male
  Weight: 92 kg

DRUGS (10)
  1. CELLCEPT [Suspect]
     Indication: PRODUCT USED FOR UNKNOWN INDICATION
     Dosage: Last dose: 25/Jun/2012
     Route: 065
     Dates: start: 20110511
  2. NYSTATIN [Concomitant]
     Route: 065
  3. COTRIMOXAZOLE/PHENAZOPYRIDINE [Concomitant]
     Route: 065
     Dates: start: 20120630
  4. MUPIROCIN [Concomitant]
     Route: 065
     Dates: start: 20120629
  5. OMEPRAZOLE [Concomitant]
     Route: 065
  6. GLICLAZIDE [Concomitant]
     Route: 065
  7. FERROUS FUMARATE [Concomitant]
     Route: 065
  8. CALCICHEW D3 FORTE [Concomitant]
     Route: 065
  9. AMITRIPTYLINE [Concomitant]
     Route: 065
  10. AMLODIPINE [Concomitant]
     Route: 065

REACTIONS (1)
  - Scleritis [Not Recovered/Not Resolved]
